FAERS Safety Report 10390055 (Version 2)
Quarter: 2015Q1

REPORT INFORMATION
  Report Type: Spontaneous
  Country: FR (occurrence: FR)
  Receive Date: 20140818
  Receipt Date: 20150330
  Transmission Date: 20150720
  Serious: Yes (Hospitalization)
  Sender: FDA-Public Use
  Company Number: FR-SA-2014SA107567

PATIENT
  Age: 45 Year
  Sex: Male

DRUGS (5)
  1. LOVENOX [Suspect]
     Active Substance: ENOXAPARIN SODIUM
     Indication: PRODUCT USED FOR UNKNOWN INDICATION
     Route: 058
     Dates: start: 20140722, end: 20140727
  2. AMOXICILLIN. [Suspect]
     Active Substance: AMOXICILLIN
     Indication: DERMO-HYPODERMITIS
     Dosage: INTRAVENOUS INFUSION
     Dates: start: 20140723, end: 20140727
  3. ZYVOXID [Suspect]
     Active Substance: LINEZOLID
     Indication: DERMO-HYPODERMITIS
     Route: 048
     Dates: start: 20140723, end: 20140728
  4. TRAMADOL [Suspect]
     Active Substance: TRAMADOL
     Indication: PRODUCT USED FOR UNKNOWN INDICATION
     Route: 048
     Dates: start: 20140723, end: 20140727
  5. DALACIN [Suspect]
     Active Substance: CLINDAMYCIN\CLINDAMYCIN PHOSPHATE
     Indication: DERMO-HYPODERMITIS
     Dosage: IV INFUSION
     Dates: start: 20140721, end: 20140809

REACTIONS (1)
  - Thrombophlebitis superficial [Recovered/Resolved]

NARRATIVE: CASE EVENT DATE: 20140727
